FAERS Safety Report 9435871 (Version 2)
Quarter: 2013Q3

REPORT INFORMATION
  Report Type: Spontaneous
  Country: US (occurrence: US)
  Receive Date: 20130801
  Receipt Date: 20130907
  Transmission Date: 20140515
  Serious: No
  Sender: FDA-Public Use
  Company Number: US-B.I. PHARMACEUTICALS,INC./RIDGEFIELD-2013-BI-22480BP

PATIENT
  Sex: Female

DRUGS (2)
  1. EFFIENT [Suspect]
     Indication: ATRIAL FIBRILLATION
  2. EFFIENT [Suspect]
     Dosage: DOSE:10 MG
     Dates: start: 201210

REACTIONS (1)
  - Soft tissue mass [Not Recovered/Not Resolved]
